FAERS Safety Report 6507199-1 (Version None)
Quarter: 2009Q4

REPORT INFORMATION
  Report Type: 
  Country: None (occurrence: None)
  Receive Date: 20091221
  Receipt Date: 20091211
  Transmission Date: 20100525
  Serious: Yes (Other)
  Sender: FDA-Public Use
  Company Number: PHEH2009US17750

PATIENT
  Sex: Female

DRUGS (1)
  1. EXJADE [Suspect]
     Dosage: 1250 MG DAILY
     Route: 048

REACTIONS (3)
  - BILE DUCT STENT INSERTION [None]
  - BILE DUCT STONE [None]
  - CONCOMITANT DISEASE AGGRAVATED [None]
